FAERS Safety Report 8884456 (Version 1)
Quarter: 2012Q4

REPORT INFORMATION
  Report Type: 
  Country: US (occurrence: US)
  Receive Date: 20121102
  Receipt Date: 20121102
  Transmission Date: 20130627
  Serious: No
  Sender: FDA-Public Use
  Company Number: US-ASTRAZENECA-2012SE18978

PATIENT
  Age: 35 Year
  Sex: Female

DRUGS (4)
  1. CRESTOR [Suspect]
     Route: 048
  2. NEXIUM [Suspect]
     Route: 048
  3. SYMBICORT PMDI [Suspect]
     Route: 055
  4. TOPROL XL [Suspect]
     Route: 048

REACTIONS (1)
  - Cardiac disorder [Unknown]
